FAERS Safety Report 5962436-7 (Version None)
Quarter: 2008Q4

REPORT INFORMATION
  Report Type: 
  Country: None (occurrence: None)
  Receive Date: 20081121
  Receipt Date: 20081114
  Transmission Date: 20090506
  Serious: Yes (Other)
  Sender: FDA-Public Use
  Company Number: US-PFIZER INC-2005025508

PATIENT
  Sex: Female
  Weight: 62.1 kg

DRUGS (11)
  1. LIPITOR [Suspect]
     Indication: BLOOD CHOLESTEROL INCREASED
     Route: 048
     Dates: start: 20030101, end: 20080901
  2. TEMAZEPAM [Concomitant]
     Route: 048
  3. ENALAPRIL MALEATE [Concomitant]
     Route: 048
  4. ALL OTHER THERAPEUTIC PRODUCTS [Concomitant]
     Route: 048
  5. FUROSEMIDE [Concomitant]
     Indication: FLUID RETENTION
     Route: 048
  6. METFORMIN HCL [Concomitant]
     Route: 048
  7. VICODIN [Concomitant]
     Route: 048
  8. SKELAXIN [Concomitant]
     Route: 048
  9. POTASSIUM CHLORIDE [Concomitant]
  10. CYMBALTA [Concomitant]
  11. ANALGESICS [Concomitant]
     Indication: BACK DISORDER

REACTIONS (8)
  - BLOOD TRIGLYCERIDES INCREASED [None]
  - ENDOCRINE OPHTHALMOPATHY [None]
  - GASTRIC DISORDER [None]
  - LUPUS-LIKE SYNDROME [None]
  - PAIN [None]
  - SWELLING [None]
  - THYROID DISORDER [None]
  - THYROID FUNCTION TEST ABNORMAL [None]
